FAERS Safety Report 9012150 (Version 2)
Quarter: 2013Q1

REPORT INFORMATION
  Report Type: Spontaneous
  Country: US (occurrence: None)
  Receive Date: 20121227
  Receipt Date: 20130204
  Transmission Date: 20140127
  Serious: Yes (Death, Other)
  Sender: FDA-Public Use
  Company Number: TPA2012A10221

PATIENT
  Age: 74 Year
  Sex: Female

DRUGS (4)
  1. ACTOS [Suspect]
     Indication: TYPE 2 DIABETES MELLITUS
     Dosage: 45 MG , 1 IN 1 D
     Dates: start: 20081014, end: 20090819
  2. GLUCOPHAGE (METFORMIN HYDROCHLORIDE) [Concomitant]
  3. GLYBURIDE (GLIBENCLAMIDE) [Concomitant]
  4. METFORMIN (METFORMIN) [Concomitant]

REACTIONS (1)
  - Bladder cancer [None]
